FAERS Safety Report 21727629 (Version 4)
Quarter: 2023Q4

REPORT INFORMATION
  Report Type: Report from Study
  Country: FR (occurrence: FR)
  Receive Date: 20221214
  Receipt Date: 20231207
  Transmission Date: 20240110
  Serious: Yes (Hospitalization, Other)
  Sender: FDA-Public Use
  Company Number: FR-SERVIER-S22012430

PATIENT

DRUGS (6)
  1. PEGASPARGASE [Suspect]
     Active Substance: PEGASPARGASE
     Indication: Acute lymphocytic leukaemia
     Dosage: 1050 IU, D8, D36, D64
     Route: 042
     Dates: start: 20220307, end: 20220502
  2. MERCAPTOPURINE [Suspect]
     Active Substance: MERCAPTOPURINE
     Indication: Acute lymphocytic leukaemia
     Dosage: 40 MG, (D1 TO D21, D29 TO D49, D57)
     Route: 048
     Dates: start: 20220228
  3. DEXAMETHASONE [Suspect]
     Active Substance: DEXAMETHASONE
     Indication: Acute lymphocytic leukaemia
     Dosage: 5 MG, (D1 TO D5-D29, D33-D57 TO UNSPECIFIED)
     Route: 048
     Dates: start: 20220228
  4. VINCRISTINE [Suspect]
     Active Substance: VINCRISTINE
     Indication: Acute lymphocytic leukaemia
     Dosage: 1.3 MG, (D1, D8, D29, D36, D5, D64)
     Route: 042
     Dates: start: 20220228, end: 20220502
  5. METHOTREXATE [Suspect]
     Active Substance: METHOTREXATE
     Indication: Acute lymphocytic leukaemia
     Dosage: 12 MG, (D2, D30, D58)
     Route: 037
     Dates: start: 20220301, end: 20220426
  6. METHOTREXATE [Suspect]
     Active Substance: METHOTREXATE
     Dosage: 20 MG, (D15, D22, D36, D43, D50, D64, D71, D78)
     Route: 048
     Dates: start: 20220314, end: 20220316

REACTIONS (3)
  - Behaviour disorder [Recovered/Resolved]
  - Hyperbilirubinaemia [Recovered/Resolved]
  - Hyperbilirubinaemia [Recovered/Resolved]

NARRATIVE: CASE EVENT DATE: 20220307
